FAERS Safety Report 9809329 (Version 3)
Quarter: 2014Q2

REPORT INFORMATION
  Report Type: Spontaneous
  Country: US (occurrence: US)
  Receive Date: 20140110
  Receipt Date: 20140402
  Transmission Date: 20141212
  Serious: Yes (Death, Hospitalization)
  Sender: FDA-Public Use
  Company Number: US-ACTELION-A-NJ2013-93584

PATIENT
  Age: 60 Year
  Sex: Female

DRUGS (17)
  1. OPSUMIT [Suspect]
     Indication: PULMONARY ARTERIAL HYPERTENSION
     Dosage: 10 MG, QD
     Route: 048
     Dates: start: 20131202, end: 20131204
  2. SILDENAFIL [Concomitant]
     Dosage: 20 MG, TID
     Dates: start: 20131202, end: 20131204
  3. CIPRO [Concomitant]
  4. PROZAC [Concomitant]
  5. TRAZODONE [Concomitant]
  6. URSODIOL [Concomitant]
  7. XIFAXAN [Concomitant]
  8. ZINC [Concomitant]
  9. ACARBOSE [Concomitant]
  10. CALCIUM GLUCONATE [Concomitant]
  11. CETIRIZINE [Concomitant]
  12. LACTULOSE [Concomitant]
  13. CARAFATE [Concomitant]
  14. CHOLECALCIFEROL [Concomitant]
  15. CALCITONIN [Concomitant]
  16. METAMUCIL [Concomitant]
  17. LEVOTHYROXINE [Concomitant]

REACTIONS (2)
  - Pneumonia [Fatal]
  - Respiratory failure [Fatal]
